FAERS Safety Report 9795476 (Version 1)
Quarter: 2014Q1

REPORT INFORMATION
  Report Type: Report from Study
  Country: US (occurrence: US)
  Receive Date: 20140103
  Receipt Date: 20140103
  Transmission Date: 20141002
  Serious: Yes (Death)
  Sender: FDA-Public Use
  Company Number: US-ROCHE-1320015

PATIENT
  Sex: Female

DRUGS (10)
  1. AVASTIN [Suspect]
     Indication: BREAST CANCER
     Route: 065
     Dates: start: 20110617
  2. TRASTUZUMAB [Suspect]
     Indication: BREAST CANCER
     Route: 065
  3. ABRAXANE [Concomitant]
     Route: 065
  4. ABRAXANE [Concomitant]
     Route: 065
     Dates: start: 20110624
  5. XGEVA [Concomitant]
     Route: 058
  6. ALOXI [Concomitant]
     Route: 065
  7. DEXAMETHASONE [Concomitant]
     Route: 065
  8. BENADRYL (UNITED STATES) [Concomitant]
     Route: 065
  9. PROCRIT [Concomitant]
     Route: 058
     Dates: start: 20110624
  10. TAXOTERE [Concomitant]

REACTIONS (1)
  - Death [Fatal]
